FAERS Safety Report 5482866-X (Version None)
Quarter: 2007Q4

REPORT INFORMATION
  Report Type: 
  Country: None (occurrence: None)
  Receive Date: 20071011
  Receipt Date: 20071001
  Transmission Date: 20080405
  Serious: Yes (Hospitalization, Other)
  Sender: FDA-Public Use
  Company Number: US-PFIZER INC-2007027830

PATIENT
  Sex: Male
  Weight: 124.7 kg

DRUGS (2)
  1. CELEBREX [Suspect]
     Dates: start: 20021007, end: 20021208
  2. BEXTRA [Suspect]
     Indication: ARTHRITIS
     Dates: start: 20030209

REACTIONS (7)
  - ARRHYTHMIA [None]
  - CEREBROVASCULAR ACCIDENT [None]
  - MYOCARDIAL INFARCTION [None]
  - ORGAN FAILURE [None]
  - PULMONARY EMBOLISM [None]
  - STEVENS-JOHNSON SYNDROME [None]
  - THROMBOSIS [None]
